FAERS Safety Report 4633192-X (Version None)
Quarter: 2005Q2

REPORT INFORMATION
  Report Type: 
  Country: None (occurrence: None)
  Receive Date: 20050408
  Receipt Date: 20050330
  Transmission Date: 20051028
  Serious: Yes (Hospitalization)
  Sender: FDA-Public Use
  Company Number: 2005052354

PATIENT
  Age: 82 Year
  Sex: Female

DRUGS (8)
  1. AMLODIPINE [Suspect]
     Indication: ILL-DEFINED DISORDER
     Dosage: UNK (5 MG, UNKNOWN), ORAL
     Route: 048
  2. FENOFIBRATE [Suspect]
     Indication: ILL-DEFINED DISORDER
     Dosage: 160 MG (INTERVAL: EVERY DAY), ORAL
     Route: 048
  3. NOCTRAN 10 (ACEPROMAZINE, ACEPROMETAZINE, CLORAZEPATE DIPOTASSIUM) [Suspect]
     Indication: ILL-DEFINED DISORDER
     Dosage: 10 MG (INTERVAL: EVERY DAY), ORAL
     Route: 048
     Dates: end: 20050215
  4. PANTOPRAZOLE (PANTOPRAZOLE) [Suspect]
     Indication: ILL-DEFINED DISORDER
     Dosage: 20 MG (INTERVAL: EVERY DAY), ORAL
     Route: 048
  5. NIMESULIDE (CANDESARTAN CILEXETIL) (NIMESULIDE) [Suspect]
     Indication: ILL-DEFINED DISORDER
     Dosage: 8 MG (INTERVAL: EVERY DAY), ORAL
     Route: 048
     Dates: end: 20050221
  6. CANDESARTAN (CANDESARTAN) [Suspect]
     Indication: ILL-DEFINED DISORDER
     Dosage: 8 MG (EVERY DAY), ORAL
     Route: 048
     Dates: end: 20050221
  7. COLCHICINE/OPIUM/TIEMONIUM (COLCHICINE, OPIUM, TIEMONIUM METHYLSULPHAT [Concomitant]
  8. CORTICOSTEROIDS (CORTICOSTEROIDS) [Concomitant]

REACTIONS (8)
  - ANAEMIA [None]
  - ANTINUCLEAR ANTIBODY POSITIVE [None]
  - ARTHRALGIA [None]
  - DNA ANTIBODY POSITIVE [None]
  - INFLAMMATION [None]
  - KERATOCONJUNCTIVITIS SICCA [None]
  - RHEUMATOID FACTOR POSITIVE [None]
  - SYSTEMIC LUPUS ERYTHEMATOSUS [None]
